FAERS Safety Report 8895828 (Version 1)
Quarter: 2012Q4

REPORT INFORMATION
  Report Type: 
  Country: CA (occurrence: CA)
  Receive Date: 20121108
  Receipt Date: 20121108
  Transmission Date: 20130627
  Serious: Yes (Hospitalization)
  Sender: FDA-Public Use
  Company Number: CA-ASTRAZENECA-2012SE83213

PATIENT
  Age: 63 Year
  Sex: Female
  Weight: 84 kg

DRUGS (9)
  1. NEXIUM [Suspect]
     Route: 048
  2. CALCIUM CITRATE [Concomitant]
  3. FOLIC ACID [Concomitant]
  4. HCTZ [Concomitant]
  5. METHOTREXATE [Concomitant]
  6. NORVASC [Concomitant]
  7. RENAGEL [Concomitant]
  8. ROCALTROL [Concomitant]
  9. SYNTHROID [Concomitant]

REACTIONS (3)
  - Blood calcium decreased [Unknown]
  - Hypoparathyroidism [Unknown]
  - Blood magnesium decreased [Unknown]
